FAERS Safety Report 5934661-2 (Version None)
Quarter: 2008Q4

REPORT INFORMATION
  Report Type: 
  Country: None (occurrence: None)
  Receive Date: 20081010
  Receipt Date: 20080822
  Transmission Date: 20090506
  Serious: No
  Sender: FDA-Public Use
  Company Number: 2008BM000174

PATIENT
  Age: 53 Year
  Sex: Female
  Weight: 97.0698 kg

DRUGS (9)
  1. KUVAN [Suspect]
     Indication: PHENYLKETONURIA
     Dosage: 2000 MG;QD;PO
     Dates: start: 20080826
  2. ZEGERID [Concomitant]
  3. COLESTIPOL HYDROCHLORIDE [Concomitant]
  4. HYDROCHLORIDE [Concomitant]
  5. LYRICA [Concomitant]
  6. PLEXI 10 [Concomitant]
  7. CENTRUM SILVER      /01292501/ [Concomitant]
  8. CALCIUM [Concomitant]
  9. IBUPROFEN   /00109205/ [Concomitant]

REACTIONS (2)
  - DIARRHOEA [None]
  - FLATULENCE [None]
